FAERS Safety Report 4981468-9 (Version None)
Quarter: 2006Q2

REPORT INFORMATION
  Report Type: 
  Country: None (occurrence: None)
  Receive Date: 20060424
  Receipt Date: 20051011
  Transmission Date: 20061013
  Serious: Yes (Hospitalization)
  Sender: FDA-Public Use
  Company Number: US-MERCK-0510USA06719

PATIENT
  Age: 39 Year
  Sex: Male
  Weight: 86 kg

DRUGS (2)
  1. VIOXX [Suspect]
     Indication: ARTHRALGIA
     Route: 048
     Dates: start: 20010725, end: 20030101
  2. VIOXX [Suspect]
     Route: 048
     Dates: start: 20031113

REACTIONS (11)
  - ABDOMINAL PAIN [None]
  - ACUTE MYOCARDIAL INFARCTION [None]
  - ANXIETY [None]
  - DEEP VEIN THROMBOSIS [None]
  - DEPRESSION [None]
  - GASTRITIS [None]
  - NEPHROLITHIASIS [None]
  - OESOPHAGITIS [None]
  - OSTEONECROSIS [None]
  - SINUSITIS [None]
  - SLEEP APNOEA SYNDROME [None]
